FAERS Safety Report 18635773 (Version 1)
Quarter: 2020Q4

REPORT INFORMATION
  Report Type: Spontaneous
  Country: GR (occurrence: GR)
  Receive Date: 20201218
  Receipt Date: 20201218
  Transmission Date: 20210114
  Serious: Yes (Hospitalization, Other)
  Sender: FDA-Public Use
  Company Number: GR-BAYER-2020-278393

PATIENT
  Age: 84 Year
  Sex: Male

DRUGS (1)
  1. CIPROXIN 500 MG [Suspect]
     Active Substance: CIPROFLOXACIN
     Indication: URINARY TRACT INFECTION
     Dosage: 500 MG, BID

REACTIONS (4)
  - Hypersensitivity vasculitis [Recovering/Resolving]
  - Henoch-Schonlein purpura [Recovering/Resolving]
  - Chronic kidney disease [Recovering/Resolving]
  - Haematuria [Recovering/Resolving]
